FAERS Safety Report 11544305 (Version 1)
Quarter: 2015Q3

REPORT INFORMATION
  Report Type: Spontaneous
  Country: JP (occurrence: JP)
  Receive Date: 20150924
  Receipt Date: 20150924
  Transmission Date: 20151125
  Serious: Yes (Hospitalization)
  Sender: FDA-Public Use
  Company Number: JP-ASTRAZENECA-2015SE90994

PATIENT
  Age: 41 Year
  Sex: Female

DRUGS (1)
  1. OMEPRAL [Suspect]
     Active Substance: OMEPRAZOLE
     Indication: GASTROOESOPHAGEAL REFLUX DISEASE
     Route: 048

REACTIONS (4)
  - Arthralgia [Unknown]
  - Malaise [Unknown]
  - Tubulointerstitial nephritis and uveitis syndrome [Recovering/Resolving]
  - Tubulointerstitial nephritis [Recovering/Resolving]
